FAERS Safety Report 21799270 (Version 1)
Quarter: 2022Q4

REPORT INFORMATION
  Report Type: Spontaneous
  Country: US (occurrence: None)
  Receive Date: 20221229
  Receipt Date: 20221229
  Transmission Date: 20230113
  Serious: Yes (Hospitalization)
  Sender: FDA-Public Use
  Company Number: None

PATIENT
  Age: 85 Year
  Sex: Male
  Weight: 115.21 kg

DRUGS (25)
  1. ABIRATERONE [Suspect]
     Active Substance: ABIRATERONE
     Indication: Prostate cancer
     Dosage: FREQUENCY : DAILY;?
     Route: 048
  2. ADALAT [Concomitant]
     Active Substance: NIFEDIPINE
  3. ALBUTEROL [Concomitant]
     Active Substance: ALBUTEROL
  4. ASCORBIC ACID [Concomitant]
     Active Substance: ASCORBIC ACID
  5. ASPIRIN [Concomitant]
     Active Substance: ASPIRIN
  6. BICALUTAMIDE [Concomitant]
     Active Substance: BICALUTAMIDE
  7. BREZTRI [Concomitant]
     Active Substance: BUDESONIDE\FORMOTEROL\GLYCOPYRROLATE
  8. COENZYME Q-10 [Concomitant]
  9. EFFEXOR [Concomitant]
     Active Substance: VENLAFAXINE HYDROCHLORIDE
  10. ELIGARD [Concomitant]
     Active Substance: LEUPROLIDE ACETATE
  11. FLAXSEED [Concomitant]
     Active Substance: FLAX SEED
  12. GABAPENTIN [Concomitant]
     Active Substance: GABAPENTIN
  13. LASIX [Concomitant]
     Active Substance: FUROSEMIDE
  14. MAGNESIUM [Concomitant]
     Active Substance: MAGNESIUM
  15. VITAMINS [Concomitant]
     Active Substance: VITAMINS
  16. FISH OIL\OMEGA-3 FATTY ACIDS [Concomitant]
     Active Substance: FISH OIL\OMEGA-3 FATTY ACIDS
  17. PRAVASTATIN [Concomitant]
     Active Substance: PRAVASTATIN
  18. PREDNISONE [Concomitant]
     Active Substance: PREDNISONE
  19. RITALIN [Concomitant]
     Active Substance: METHYLPHENIDATE HYDROCHLORIDE
  20. SPIRIVA [Concomitant]
     Active Substance: TIOTROPIUM BROMIDE MONOHYDRATE
  21. SYMBICORT [Concomitant]
     Active Substance: BUDESONIDE\FORMOTEROL FUMARATE DIHYDRATE
  22. TOPROL XL [Concomitant]
     Active Substance: METOPROLOL SUCCINATE
  23. VITAMIN B6 [Concomitant]
     Active Substance: PYRIDOXINE HYDROCHLORIDE
  24. VITAMIN D3 [Concomitant]
     Active Substance: CHOLECALCIFEROL
  25. ZETIA [Concomitant]
     Active Substance: EZETIMIBE

REACTIONS (1)
  - Hospitalisation [None]
